FAERS Safety Report 5430811-5 (Version None)
Quarter: 2007Q3

REPORT INFORMATION
  Report Type: 
  Country: None (occurrence: None)
  Receive Date: 20070830
  Receipt Date: 20061130
  Transmission Date: 20080115
  Serious: No
  Sender: FDA-Public Use
  Company Number: A0629704A

PATIENT
  Age: 67 Year

DRUGS (4)
  1. WELLBUTRIN XL [Suspect]
     Indication: DEPRESSION
     Dosage: 300MG PER DAY
     Route: 048
     Dates: start: 20061127
  2. VERAPAMIL [Concomitant]
  3. DITROPAN [Concomitant]
  4. ZELNORM [Concomitant]

REACTIONS (5)
  - EAR DISCOMFORT [None]
  - PHARYNGEAL OEDEMA [None]
  - PRURITUS [None]
  - PRURITUS GENERALISED [None]
  - URTICARIA [None]
